FAERS Safety Report 7052453-0 (Version None)
Quarter: 2010Q4

REPORT INFORMATION
  Report Type: 
  Country: None (occurrence: None)
  Receive Date: 20101019
  Receipt Date: 20101006
  Transmission Date: 20110411
  Serious: Yes (Hospitalization, Other)
  Sender: FDA-Public Use
  Company Number: DE-ELI_LILLY_AND_COMPANY-DE201006005912

PATIENT
  Sex: Male
  Weight: 80 kg

DRUGS (2)
  1. OLANZAPINE [Suspect]
     Indication: SCHIZOPHRENIA
     Dosage: 210 MG EVERY FOUR WEEKS
     Route: 030
     Dates: start: 20100622
  2. LORAZEPAM [Concomitant]
     Indication: SUICIDAL IDEATION
     Dosage: UNK, UNKNOWN
     Route: 065

REACTIONS (9)
  - ANXIETY [None]
  - DELUSION [None]
  - DRUG LEVEL BELOW THERAPEUTIC [None]
  - FATIGUE [None]
  - PSYCHOTIC DISORDER [None]
  - SEDATION [None]
  - SOMNOLENCE [None]
  - SUICIDAL IDEATION [None]
  - SUICIDE ATTEMPT [None]
